FAERS Safety Report 4970195-X (Version None)
Quarter: 2006Q2

REPORT INFORMATION
  Report Type: 
  Country: None (occurrence: None)
  Receive Date: 20060412
  Receipt Date: 20060404
  Transmission Date: 20061013
  Serious: Yes (Other)
  Sender: FDA-Public Use
  Company Number: US-ABBOTT-06P-163-0330286-00

PATIENT
  Age: 32 Year
  Sex: Female

DRUGS (4)
  1. NORVIR [Suspect]
     Indication: HIV INFECTION
     Route: 048
  2. TENOFOVIR [Suspect]
     Indication: HIV INFECTION
     Route: 048
  3. ENFUVIRTIDE [Suspect]
     Indication: HIV INFECTION
     Route: 058
  4. APTIVUS [Suspect]
     Indication: HIV INFECTION
     Route: 048

REACTIONS (3)
  - ABORTION SPONTANEOUS [None]
  - DRUG EXPOSURE DURING PREGNANCY [None]
  - PREGNANCY [None]
